FAERS Safety Report 9006606 (Version 1)
Quarter: 2013Q1

REPORT INFORMATION
  Report Type: Spontaneous
  Country: US (occurrence: US)
  Receive Date: 20130110
  Receipt Date: 20130110
  Transmission Date: 20140127
  Serious: Yes (Death)
  Sender: FDA-Public Use
  Company Number: US-PFIZER INC-2013009190

PATIENT
  Age: 68 Year
  Sex: Female

DRUGS (4)
  1. FENTANYL [Suspect]
  2. VERAPAMIL HCL [Suspect]
  3. ACETAMINOPHEN W/HYDROCODONE BITARTRATE [Suspect]
  4. CYCLOBENZAPRINE [Suspect]

REACTIONS (2)
  - Drug abuse [Fatal]
  - Toxicity to various agents [None]
